FAERS Safety Report 16037547 (Version 1)
Quarter: 2019Q1

REPORT INFORMATION
  Report Type: Spontaneous
  Country: US (occurrence: US)
  Receive Date: 20190305
  Receipt Date: 20190305
  Transmission Date: 20190418
  Serious: No
  Sender: FDA-Public Use
  Company Number: US-IMPAX LABORATORIES, LLC-2018-IPXL-03826

PATIENT
  Sex: Female

DRUGS (6)
  1. RYTARY [Suspect]
     Active Substance: CARBIDOPA\LEVODOPA
     Indication: PARKINSON^S DISEASE
     Dosage: 23.75/95 MG, 12 CAPSULES, DAILY
     Route: 048
     Dates: start: 20181010, end: 2018
  2. FLEXERIL [Concomitant]
     Active Substance: CYCLOBENZAPRINE HYDROCHLORIDE
     Indication: MUSCLE TIGHTNESS
     Dosage: UNK
     Route: 065
  3. MENOSTAR [Concomitant]
     Active Substance: ESTRADIOL
     Indication: OSTEOPOROSIS
     Dosage: 1 PATCH, EVERY 7 DAYS
     Route: 065
  4. ACETAMINOPHEN AND CODEINE [Concomitant]
     Active Substance: ACETAMINOPHEN\CODEINE PHOSPHATE
     Indication: PAIN
     Dosage: 1 DOSAGE FORM, DAILY (AS NEEDED)
     Route: 065
  5. RYTARY [Suspect]
     Active Substance: CARBIDOPA\LEVODOPA
     Dosage: 23.75/95 MG, 11 CAPSULES, DAILY (3 AT 7 AM, 3 AT 11AM, 3 AT 2 PM AND 2 AT 7 PM)
     Route: 048
     Dates: start: 2018
  6. XANAX [Concomitant]
     Active Substance: ALPRAZOLAM
     Indication: ANXIOLYTIC THERAPY
     Dosage: 0.5 MG
     Route: 065

REACTIONS (8)
  - Dystonia [Not Recovered/Not Resolved]
  - Intentional product use issue [Unknown]
  - Hallucination [Recovered/Resolved]
  - Dyskinesia [Unknown]
  - Insomnia [Unknown]
  - Swelling [Unknown]
  - Diarrhoea [Unknown]
  - Pain [Unknown]

NARRATIVE: CASE EVENT DATE: 2018
